FAERS Safety Report 24257206 (Version 1)
Quarter: 2024Q3

REPORT INFORMATION
  Report Type: Report from Study
  Country: US (occurrence: US)
  Receive Date: 20240828
  Receipt Date: 20240828
  Transmission Date: 20241016
  Serious: Yes (Other)
  Sender: ABBVIE
  Company Number: US-ABBVIE-5894109

PATIENT
  Sex: Female

DRUGS (1)
  1. HUMIRA [Suspect]
     Active Substance: ADALIMUMAB
     Indication: Rheumatoid arthritis
     Route: 058
     Dates: start: 20140105

REACTIONS (5)
  - Cataract [Recovered/Resolved]
  - Osteoarthritis [Unknown]
  - Macular degeneration [Not Recovered/Not Resolved]
  - Tremor [Not Recovered/Not Resolved]
  - Macular degeneration [Unknown]

NARRATIVE: CASE EVENT DATE: 20140101
